FAERS Safety Report 11671931 (Version 1)
Quarter: 2015Q4

REPORT INFORMATION
  Report Type: Spontaneous
  Country: US (occurrence: US)
  Receive Date: 20151027
  Receipt Date: 20151027
  Transmission Date: 20160304
  Serious: No
  Sender: FDA-Public Use
  Company Number: US-ELI_LILLY_AND_COMPANY-US201006004196

PATIENT
  Sex: Female

DRUGS (3)
  1. FORTEO [Suspect]
     Active Substance: TERIPARATIDE
     Indication: OSTEOPOROSIS
     Dosage: 20 UG, DAILY (1/D)
  2. BYETTA [Concomitant]
     Active Substance: EXENATIDE
     Dosage: 20 UG, DAILY (1/D)
  3. COUMADIN [Concomitant]
     Active Substance: WARFARIN SODIUM

REACTIONS (5)
  - Diarrhoea [Not Recovered/Not Resolved]
  - Blood glucose decreased [Unknown]
  - Drug interaction [Unknown]
  - Fatigue [Not Recovered/Not Resolved]
  - Abdominal pain upper [Unknown]
